FAERS Safety Report 24241377 (Version 1)
Quarter: 2024Q3

REPORT INFORMATION
  Report Type: Report from Study
  Country: PL (occurrence: PL)
  Receive Date: 20240823
  Receipt Date: 20240823
  Transmission Date: 20241016
  Serious: Yes (Death, Other)
  Sender: ROCHE
  Company Number: PL-ROCHE-10000060575

PATIENT

DRUGS (11)
  1. RITUXIMAB [Suspect]
     Active Substance: RITUXIMAB
     Indication: Central nervous system lymphoma
     Route: 065
  2. METHOTREXATE [Suspect]
     Active Substance: METHOTREXATE
     Indication: Central nervous system lymphoma
     Route: 065
  3. PROCARBAZINE [Suspect]
     Active Substance: PROCARBAZINE
     Indication: Central nervous system lymphoma
     Route: 065
  4. VINCRISTINE [Suspect]
     Active Substance: VINCRISTINE
     Indication: Central nervous system lymphoma
     Route: 065
  5. CYTARABINE [Suspect]
     Active Substance: CYTARABINE
     Indication: Central nervous system lymphoma
     Route: 065
  6. THIOTEPA [Suspect]
     Active Substance: THIOTEPA
     Indication: Central nervous system lymphoma
     Route: 065
  7. CARMUSTINE [Concomitant]
     Active Substance: CARMUSTINE
  8. ETOPOSIDE [Concomitant]
     Active Substance: ETOPOSIDE
  9. TEMOZOLOMIDE [Concomitant]
     Active Substance: TEMOZOLOMIDE
  10. CYTARABINE [Concomitant]
     Active Substance: CYTARABINE
  11. LENALIDOMIDE [Concomitant]
     Active Substance: LENALIDOMIDE

REACTIONS (12)
  - COVID-19 [Fatal]
  - Infection [Fatal]
  - Brain oedema [Fatal]
  - Neutropenia [Unknown]
  - Febrile neutropenia [Unknown]
  - Transaminases increased [Unknown]
  - Nephropathy toxic [Unknown]
  - Neurotoxicity [Unknown]
  - Septic shock [Unknown]
  - Skin lesion [Unknown]
  - Pneumonia [Unknown]
  - Hepatotoxicity [Unknown]
